FAERS Safety Report 18618793 (Version 2)
Quarter: 2020Q4

REPORT INFORMATION
  Report Type: Spontaneous
  Country: JP (occurrence: JP)
  Receive Date: 20201215
  Receipt Date: 20201218
  Transmission Date: 20210114
  Serious: Yes (Death, Hospitalization)
  Sender: FDA-Public Use
  Company Number: JP-SA-2020SA356470

PATIENT

DRUGS (2)
  1. TEGAFUR GIMERACIL AND OTERACIL POTASSIUM [Suspect]
     Active Substance: GIMERACIL\OTERACIL\TEGAFUR
     Indication: GASTRIC CANCER
     Dosage: UNK
     Route: 048
  2. ELPLAT [Suspect]
     Active Substance: OXALIPLATIN
     Indication: GASTRIC CANCER
     Dosage: UNK UNK, Q3W
     Route: 041

REACTIONS (4)
  - Sudden death [Fatal]
  - Decreased appetite [Unknown]
  - Tumour haemorrhage [Recovering/Resolving]
  - Diarrhoea [Unknown]
